FAERS Safety Report 24027134 (Version 2)
Quarter: 2024Q3

REPORT INFORMATION
  Report Type: Spontaneous
  Country: US (occurrence: US)
  Receive Date: 20240628
  Receipt Date: 20240725
  Transmission Date: 20241017
  Serious: No
  Sender: SANOFI AVENTIS
  Company Number: US-SA-SAC20240618001040

PATIENT
  Age: 15 Year
  Sex: Female
  Weight: 56.2 kg

DRUGS (6)
  1. DUPIXENT [Suspect]
     Active Substance: DUPILUMAB
     Indication: Dermatitis
     Dosage: UNK UNK, QOW
     Route: 058
     Dates: start: 202404
  2. DUPIXENT [Suspect]
     Active Substance: DUPILUMAB
     Indication: Dermatitis atopic
     Dosage: 200 MG, QOW
     Route: 058
     Dates: start: 202405
  3. TACROLIMUS [Concomitant]
     Active Substance: TACROLIMUS
     Dosage: APPLY THINLY TO AFFECTED AREA TOPICALLY BID 2-3WEEKS
     Route: 061
  4. MOMETASONE [Concomitant]
     Active Substance: MOMETASONE
     Dosage: APPLY THINLY TO AFFECTED AREAS TOPICALLY ONCE TO TWICE A DAY FOR UPTO 1WEEKS
     Route: 061
  5. ALBUTEROL SULFATE [Concomitant]
     Active Substance: ALBUTEROL SULFATE
     Dosage: UNK
  6. SYMBICORT [Concomitant]
     Active Substance: BUDESONIDE\FORMOTEROL FUMARATE DIHYDRATE
     Dosage: UNK

REACTIONS (5)
  - Eczema [Unknown]
  - Pruritus [Unknown]
  - Skin lesion [Unknown]
  - Rash [Recovered/Resolved]
  - Product use in unapproved indication [Unknown]

NARRATIVE: CASE EVENT DATE: 20230501
